FAERS Safety Report 7273097-1 (Version None)
Quarter: 2011Q1

REPORT INFORMATION
  Report Type: 
  Country: None (occurrence: None)
  Receive Date: 20110203
  Receipt Date: 20110126
  Transmission Date: 20110831
  Serious: Yes (Hospitalization)
  Sender: FDA-Public Use
  Company Number: US-AMGEN-USASP2011004954

PATIENT
  Age: 61 Year
  Sex: Male

DRUGS (3)
  1. ENBREL [Suspect]
     Indication: RHEUMATOID ARTHRITIS
     Dosage: 50 MG, QWK
     Dates: start: 20101101
  2. PROZAC                             /00724401/ [Concomitant]
     Dosage: UNK
     Dates: start: 20101105, end: 20101106
  3. TRAZODONE HCL [Concomitant]
     Dosage: UNK
     Dates: start: 20101105, end: 20101106

REACTIONS (7)
  - INJECTION SITE PRURITUS [None]
  - INJECTION SITE ERYTHEMA [None]
  - INJECTION SITE SWELLING [None]
  - EPIGLOTTIC OEDEMA [None]
  - DYSPNOEA [None]
  - ADVERSE DRUG REACTION [None]
  - PULMONARY EMBOLISM [None]
